FAERS Safety Report 12850804 (Version 1)
Quarter: 2016Q4

REPORT INFORMATION
  Report Type: Report from Study
  Country: US (occurrence: US)
  Receive Date: 20161014
  Receipt Date: 20161014
  Transmission Date: 20170207
  Serious: Yes (Hospitalization)
  Sender: FDA-Public Use
  Company Number: US-B.I. PHARMACEUTICALS,INC./RIDGEFIELD-2016-BI-45306BP

PATIENT
  Sex: Male

DRUGS (2)
  1. OFEV [Suspect]
     Active Substance: NINTEDANIB
     Indication: IDIOPATHIC PULMONARY FIBROSIS
     Route: 048
     Dates: start: 20160707
  2. OFEV [Suspect]
     Active Substance: NINTEDANIB
     Route: 048

REACTIONS (15)
  - Headache [Unknown]
  - Dyspnoea [Unknown]
  - Productive cough [Unknown]
  - Dyspnoea exertional [Unknown]
  - Constipation [Unknown]
  - Irritability [Unknown]
  - Decreased appetite [Unknown]
  - Ageusia [Unknown]
  - Dry mouth [Unknown]
  - Inappropriate schedule of drug administration [Unknown]
  - Rib fracture [Unknown]
  - Abasia [Unknown]
  - Weight decreased [Unknown]
  - Fall [Unknown]
  - Traumatic lung injury [Unknown]
